FAERS Safety Report 9419128 (Version 4)
Quarter: 2013Q4

REPORT INFORMATION
  Report Type: Report from Study
  Country: US (occurrence: US)
  Receive Date: 20130725
  Receipt Date: 20131015
  Transmission Date: 20140711
  Serious: Yes (Death, Other)
  Sender: FDA-Public Use
  Company Number: US-NAPPMUNDI-USA-2013-0104743

PATIENT
  Age: 41 Year
  Sex: Male
  Weight: 129.25 kg

DRUGS (7)
  1. OXYCONTIN (NDA 22-272) [Suspect]
     Indication: PRODUCT USED FOR UNKNOWN INDICATION
     Dosage: 160 MG, AM
     Route: 048
  2. OXYCONTIN (NDA 22-272) [Suspect]
     Dosage: 240 MG, HS
     Route: 048
  3. MS CONTIN TABLETS [Suspect]
     Indication: PAIN
     Dosage: 100 MG, TID
     Route: 048
  4. XANAX [Suspect]
     Indication: PRODUCT USED FOR UNKNOWN INDICATION
     Dosage: 1 MG, Q6H
     Route: 048
  5. CODEINE [Concomitant]
     Indication: PRODUCT USED FOR UNKNOWN INDICATION
  6. INSULIN [Concomitant]
  7. CAFFEINE [Concomitant]

REACTIONS (2)
  - Accidental overdose [Fatal]
  - Drug abuse [Unknown]
